FAERS Safety Report 7176902-2 (Version None)
Quarter: 2010Q4

REPORT INFORMATION
  Report Type: 
  Country: None (occurrence: None)
  Receive Date: 20101215
  Receipt Date: 20101215
  Transmission Date: 20110411
  Serious: Yes (Other)
  Sender: FDA-Public Use
  Company Number: None

PATIENT
  Age: 66 Year
  Sex: Male
  Weight: 79.5 kg

DRUGS (1)
  1. HYDROCODONE BITARTRATE + ACETAMINOPHEN [Suspect]
     Indication: PROCTALGIA
     Dosage: 10MG TO 20 MG ONCE IN EVENING
     Dates: start: 20100901, end: 20101015

REACTIONS (1)
  - ATRIAL FIBRILLATION [None]
